FAERS Safety Report 10213105 (Version 2)
Quarter: 2014Q2

REPORT INFORMATION
  Report Type: Spontaneous
  Country: US (occurrence: US)
  Receive Date: 20140603
  Receipt Date: 20140620
  Transmission Date: 20141212
  Serious: Yes (Hospitalization)
  Sender: FDA-Public Use
  Company Number: US-BEH-2014042974

PATIENT
  Sex: Female

DRUGS (1)
  1. ZEMAIRA [Suspect]
     Dosage: ??-JAN-2012
     Dates: start: 20071213

REACTIONS (3)
  - Chronic obstructive pulmonary disease [Unknown]
  - Dyspnoea [Unknown]
  - Adverse drug reaction [Unknown]
